FAERS Safety Report 14520455 (Version 1)
Quarter: 2018Q1

REPORT INFORMATION
  Report Type: Report from Study
  Country: US (occurrence: US)
  Receive Date: 20180212
  Receipt Date: 20180212
  Transmission Date: 20180509
  Serious: Yes (Death, Life-Threatening, Hospitalization, Other)
  Sender: FDA-Public Use
  Company Number: US-AMAG PHARMACEUTICALS, INC.-AMAG201703046

PATIENT
  Age: 0 Day
  Sex: Female
  Weight: .5 kg

DRUGS (1)
  1. MAKENA [Suspect]
     Active Substance: HYDROXYPROGESTERONE CAPROATE
     Indication: FOETAL EXPOSURE DURING PREGNANCY
     Dosage: 250 MG/ML, WEEKLY
     Route: 064
     Dates: start: 20170814, end: 20170912

REACTIONS (3)
  - Foetal heart rate abnormal [Unknown]
  - Umbilical cord around neck [Recovered/Resolved]
  - Premature baby [Fatal]

NARRATIVE: CASE EVENT DATE: 20170912
